FAERS Safety Report 11557609 (Version 2)
Quarter: 2016Q3

REPORT INFORMATION
  Report Type: Spontaneous
  Country: US (occurrence: US)
  Receive Date: 20150926
  Receipt Date: 20160714
  Transmission Date: 20161109
  Serious: Yes (Other)
  Sender: FDA-Public Use
  Company Number: US-APOTEX-2015AP008204

PATIENT
  Age: 7 Year
  Sex: Male
  Weight: 30.84 kg

DRUGS (3)
  1. METHYLPHENIDATE. [Concomitant]
     Active Substance: METHYLPHENIDATE
     Indication: ATTENTION DEFICIT/HYPERACTIVITY DISORDER
     Dosage: SHORT ACTING 10MG DAILY
     Route: 065
     Dates: end: 201112
  2. METHYLPHENIDATE. [Concomitant]
     Active Substance: METHYLPHENIDATE
     Dosage: 10MG IN THE MORNING, 5MG IN THE AFTERNOON
     Dates: start: 201202, end: 201203
  3. CARBAMAZEPINE. [Suspect]
     Active Substance: CARBAMAZEPINE
     Indication: SEIZURE
     Dosage: TITRATED 300MG DAILY (30MG/KG/D)
     Route: 065
     Dates: start: 201112, end: 201205

REACTIONS (1)
  - Mania [Recovered/Resolved]
